FAERS Safety Report 10058589 (Version 1)
Quarter: 2014Q2

REPORT INFORMATION
  Report Type: Spontaneous
  Country: US (occurrence: US)
  Receive Date: 20140404
  Receipt Date: 20140404
  Transmission Date: 20141212
  Serious: Yes (Death)
  Sender: FDA-Public Use
  Company Number: US-NOVOPROD-405061

PATIENT
  Sex: Male

DRUGS (1)
  1. NOVOSEVEN RT [Suspect]
     Indication: ACQUIRED HAEMOPHILIA
     Route: 042

REACTIONS (1)
  - Death [Fatal]
